FAERS Safety Report 9667927 (Version 3)
Quarter: 2014Q3

REPORT INFORMATION
  Report Type: Spontaneous
  Country: US (occurrence: US)
  Receive Date: 20131104
  Receipt Date: 20140819
  Transmission Date: 20150326
  Serious: Yes (Hospitalization, Disabling)
  Sender: FDA-Public Use
  Company Number: US-009507513-1310USA013190

PATIENT
  Sex: Female

DRUGS (1)
  1. NUVARING [Suspect]
     Active Substance: ETHINYL ESTRADIOL\ETONOGESTREL
     Indication: PRODUCT USED FOR UNKNOWN INDICATION
     Dosage: UNK
     Route: 067
     Dates: start: 20021230

REACTIONS (3)
  - Venous stent insertion [Unknown]
  - Deep vein thrombosis [Not Recovered/Not Resolved]
  - May-Thurner syndrome [Unknown]

NARRATIVE: CASE EVENT DATE: 20030725
